FAERS Safety Report 4594656-0 (Version None)
Quarter: 2005Q1

REPORT INFORMATION
  Report Type: 
  Country: None (occurrence: None)
  Receive Date: 20050301
  Receipt Date: 20041201
  Transmission Date: 20050727
  Serious: No
  Sender: FDA-Public Use
  Company Number: US-BRISTOL-MYERS SQUIBB COMPANY-12781126

PATIENT
  Age: 72 Year
  Sex: Female
  Weight: 58 kg

DRUGS (3)
  1. ERBITUX [Suspect]
     Indication: COLON CANCER
     Route: 042
  2. BENADRYL [Concomitant]
     Indication: PREMEDICATION
  3. TYLENOL (CAPLET) [Concomitant]
     Indication: PREMEDICATION

REACTIONS (4)
  - ERYTHEMA [None]
  - GASTROINTESTINAL DISORDER [None]
  - SWELLING [None]
  - TENDERNESS [None]
